FAERS Safety Report 6754954-9 (Version None)
Quarter: 2010Q2

REPORT INFORMATION
  Report Type: 
  Country: None (occurrence: None)
  Receive Date: 20100602
  Receipt Date: 20100524
  Transmission Date: 20101027
  Serious: Yes (Life-Threatening)
  Sender: FDA-Public Use
  Company Number: 1-22757698

PATIENT
  Age: 48 Year
  Sex: Male

DRUGS (3)
  1. ULTIVA [Suspect]
     Indication: ANAESTHESIA
  2. PROPOFOL [Concomitant]
  3. VECURONIUM BROMIDE [Concomitant]

REACTIONS (3)
  - BRADYCARDIA [None]
  - CARDIAC ARREST [None]
  - PROCEDURAL COMPLICATION [None]
